FAERS Safety Report 12506361 (Version 1)
Quarter: 2016Q2

REPORT INFORMATION
  Report Type: Spontaneous
  Country: US (occurrence: US)
  Receive Date: 20160628
  Receipt Date: 20160628
  Transmission Date: 20160815
  Serious: Yes (Other)
  Sender: FDA-Public Use
  Company Number: US-BRACCO-013301

PATIENT
  Age: 52 Year
  Sex: Female

DRUGS (3)
  1. TRAMADOL. [Concomitant]
     Active Substance: TRAMADOL
  2. PREDNISONE. [Concomitant]
     Active Substance: PREDNISONE
  3. MULTIHANCE [Suspect]
     Active Substance: GADOBENATE DIMEGLUMINE
     Indication: NUCLEAR MAGNETIC RESONANCE IMAGING
     Route: 042
     Dates: start: 20160314, end: 20160314

REACTIONS (1)
  - Hypersensitivity [Recovered/Resolved]

NARRATIVE: CASE EVENT DATE: 20160314
